FAERS Safety Report 16974209 (Version 1)
Quarter: 2019Q4

REPORT INFORMATION
  Report Type: Spontaneous
  Country: US (occurrence: US)
  Receive Date: 20190912
  Receipt Date: 20190912
  Transmission Date: 20200122
  Serious: No
  Sender: FDA-Public Use
  Company Number: None

PATIENT
  Age: 45 Year

DRUGS (1)
  1. AMBRISENTAN 10MG TABLETS 3O/BO: 10MG [Suspect]
     Active Substance: AMBRISENTAN
     Indication: PULMONARY ARTERIAL HYPERTENSION
     Route: 048
     Dates: start: 20190401

REACTIONS (4)
  - Dyspnoea [None]
  - Chills [None]
  - Chest discomfort [None]
  - Influenza like illness [None]

NARRATIVE: CASE EVENT DATE: 20190829
